FAERS Safety Report 9922357 (Version 2)
Quarter: 2014Q1

REPORT INFORMATION
  Report Type: Spontaneous
  Country: US (occurrence: US)
  Receive Date: 20140225
  Receipt Date: 20140306
  Transmission Date: 20141002
  Serious: No
  Sender: FDA-Public Use
  Company Number: US-GILEAD-2014-0094867

PATIENT
  Age: 61 Year
  Sex: Female

DRUGS (4)
  1. SOVALDI [Suspect]
     Indication: HEPATITIS C
     Dosage: 3 DF, QD
     Route: 048
     Dates: start: 20140204, end: 20140206
  2. SOVALDI [Suspect]
     Dosage: 1 DF, QD
     Route: 048
     Dates: start: 20140203, end: 20140204
  3. SOVALDI [Suspect]
     Dosage: 1 DF, QD
     Route: 048
     Dates: start: 20140207
  4. RIBAVIRIN [Concomitant]

REACTIONS (1)
  - Overdose [Recovered/Resolved]
